FAERS Safety Report 6142144-2 (Version None)
Quarter: 2009Q2

REPORT INFORMATION
  Report Type: 
  Country: None (occurrence: None)
  Receive Date: 20090402
  Receipt Date: 20090330
  Transmission Date: 20091009
  Serious: Yes (Disabling)
  Sender: FDA-Public Use
  Company Number: US-MERCK-0901USA02097

PATIENT

DRUGS (1)
  1. ZETIA [Suspect]
     Route: 065

REACTIONS (3)
  - MUSCLE SPASMS [None]
  - MUSCULOSKELETAL DISORDER [None]
  - PAIN IN EXTREMITY [None]
